FAERS Safety Report 7460213-1 (Version None)
Quarter: 2011Q2

REPORT INFORMATION
  Report Type: 
  Country: None (occurrence: None)
  Receive Date: 20110505
  Receipt Date: 20110428
  Transmission Date: 20111010
  Serious: Yes (Death, Other)
  Sender: FDA-Public Use
  Company Number: JP-ROCHE-774443

PATIENT
  Sex: Male
  Weight: 60 kg

DRUGS (4)
  1. AVASTIN [Suspect]
     Indication: COLON CANCER METASTATIC
     Route: 041
     Dates: start: 20101214, end: 20101214
  2. ELPLAT [Concomitant]
     Route: 041
     Dates: start: 20101214, end: 20110215
  3. XELODA [Suspect]
     Indication: COLON CANCER METASTATIC
     Route: 048
     Dates: start: 20101214, end: 20110219
  4. AVASTIN [Suspect]
     Route: 041
     Dates: start: 20110104, end: 20110215

REACTIONS (7)
  - CEREBRAL HAEMORRHAGE [None]
  - CEREBRAL INFARCTION [None]
  - DISEASE PROGRESSION [None]
  - RESPIRATORY FAILURE [None]
  - MALIGNANT PLEURAL EFFUSION [None]
  - CEREBRAL HAEMATOMA [None]
  - MALIGNANT ASCITES [None]
